FAERS Safety Report 8002851 (Version 4)
Quarter: 2012Q4

REPORT INFORMATION
  Report Type: 
  Country: CA (occurrence: CA)
  Receive Date: 20110622
  Receipt Date: 20121218
  Transmission Date: 20130627
  Serious: Yes (Other)
  Sender: FDA-Public Use
  Company Number: CA-ROCHE-GNE320314

PATIENT
  Age: 25 Year
  Sex: Female

DRUGS (5)
  1. XOLAIR [Suspect]
     Indication: ASTHMA
     Dosage: 375 mg, Q2W
     Route: 058
     Dates: start: 20080528
  2. XOLAIR [Suspect]
     Route: 065
     Dates: start: 20110610
  3. XOLAIR [Suspect]
     Route: 065
     Dates: start: 20120608
  4. XOLAIR [Suspect]
     Route: 058
     Dates: start: 20100528
  5. PREDNISOLONE [Concomitant]
     Route: 065
     Dates: start: 20121203

REACTIONS (16)
  - Anaphylactic shock [Unknown]
  - Cough [Unknown]
  - Pain in extremity [Unknown]
  - Influenza [Unknown]
  - Bronchitis [Unknown]
  - Hypersensitivity [Unknown]
  - Fatigue [Unknown]
  - Nasopharyngitis [Unknown]
  - Respiratory tract congestion [Unknown]
  - Herpes simplex [Unknown]
  - Rhinorrhoea [Unknown]
  - Sputum discoloured [Unknown]
  - Pharyngitis [Unknown]
  - Dizziness [Recovered/Resolved]
  - Respiratory rate decreased [Unknown]
  - Wheezing [Unknown]
